FAERS Safety Report 12632661 (Version 2)
Quarter: 2016Q3

REPORT INFORMATION
  Report Type: Spontaneous
  Country: US (occurrence: US)
  Receive Date: 20160808
  Receipt Date: 20160808
  Transmission Date: 20161109
  Serious: No
  Sender: FDA-Public Use
  Company Number: US-BEH-2015056444

PATIENT
  Sex: Female
  Weight: 49 kg

DRUGS (14)
  1. HIZENTRA [Suspect]
     Active Substance: HUMAN IMMUNOGLOBULIN G
     Route: 058
  2. DIPHENHYDRAMINE. [Concomitant]
     Active Substance: DIPHENHYDRAMINE
  3. HIZENTRA [Suspect]
     Active Substance: HUMAN IMMUNOGLOBULIN G
     Route: 058
  4. VITAMIN B-100 COMPLEX [Concomitant]
  5. PROGESTERONE. [Concomitant]
     Active Substance: PROGESTERONE
  6. VITAMIN C [Concomitant]
     Active Substance: ASCORBIC ACID
  7. LIDOCAINE. [Concomitant]
     Active Substance: LIDOCAINE
  8. ESTRADIOL. [Concomitant]
     Active Substance: ESTRADIOL
  9. NATURE-THROID [Concomitant]
     Active Substance: THYROID, PORCINE
  10. COENZYME Q10 [Concomitant]
     Active Substance: UBIDECARENONE
  11. EPIPEN [Concomitant]
     Active Substance: EPINEPHRINE
  12. VITAMIN D3 [Concomitant]
     Active Substance: CHOLECALCIFEROL
  13. HIZENTRA [Suspect]
     Active Substance: HUMAN IMMUNOGLOBULIN G
     Indication: IMMUNODEFICIENCY COMMON VARIABLE
     Route: 058
  14. ACETAMINOPHEN. [Concomitant]
     Active Substance: ACETAMINOPHEN

REACTIONS (2)
  - Joint swelling [Unknown]
  - Influenza like illness [Unknown]
